FAERS Safety Report 10538959 (Version 1)
Quarter: 2014Q4

REPORT INFORMATION
  Report Type: Spontaneous
  Country: DE (occurrence: DE)
  Receive Date: 20141023
  Receipt Date: 20141023
  Transmission Date: 20150529
  Serious: Yes (Hospitalization, Other)
  Sender: FDA-Public Use
  Company Number: DE-GLAXOSMITHKLINE-DE2014005629

PATIENT

DRUGS (4)
  1. CEFUROXIM [Suspect]
     Active Substance: CEFUROXIME
     Indication: ERYSIPELAS
     Dosage: 4.5 G, UNK
     Route: 042
     Dates: start: 20140818, end: 20140822
  2. CEFUROXIM [Suspect]
     Active Substance: CEFUROXIME
     Indication: ERYSIPELAS
     Dosage: 1 G, UNK
     Route: 048
     Dates: start: 20140823, end: 20140824
  3. RANITIDIN [Suspect]
     Active Substance: RANITIDINE HYDROCHLORIDE
     Indication: GASTRITIS
     Dosage: 50 MG, UNK
     Route: 042
     Dates: start: 20140818, end: 20140822
  4. RANITIDIN [Suspect]
     Active Substance: RANITIDINE HYDROCHLORIDE
     Indication: GASTRITIS
     Dosage: 150 MG, UNK
     Route: 048
     Dates: start: 20140823, end: 20140824

REACTIONS (1)
  - Pancreatitis [Recovering/Resolving]

NARRATIVE: CASE EVENT DATE: 20140826
